FAERS Safety Report 9190867 (Version 1)
Quarter: 2013Q1

REPORT INFORMATION
  Report Type: Report from Study
  Country: JP (occurrence: JP)
  Receive Date: 20130326
  Receipt Date: 20130326
  Transmission Date: 20140127
  Serious: Yes (Disabling)
  Sender: FDA-Public Use
  Company Number: JP-GLAXOSMITHKLINE-B0697343A

PATIENT
  Age: 15 Year
  Sex: Male
  Weight: 63 kg

DRUGS (39)
  1. ARRANON [Suspect]
     Indication: T-CELL TYPE ACUTE LEUKAEMIA
     Dosage: 650MGM2 PER DAY
     Route: 042
     Dates: start: 20100422, end: 20100426
  2. ARRANON [Suspect]
     Indication: T-CELL TYPE ACUTE LEUKAEMIA
     Dosage: 650MGM2 PER DAY
     Route: 042
     Dates: start: 20100510, end: 20100514
  3. ARRANON [Suspect]
     Indication: T-CELL TYPE ACUTE LEUKAEMIA
     Dosage: 650MGM2 PER DAY
     Route: 042
     Dates: start: 20100618, end: 20100622
  4. ARRANON [Suspect]
     Indication: T-CELL TYPE ACUTE LEUKAEMIA
     Dosage: 650MGM2 PER DAY
     Route: 042
     Dates: start: 20100722, end: 20100724
  5. CYLOCIDE [Suspect]
     Indication: NEOPLASM MALIGNANT
     Route: 042
     Dates: start: 20100515, end: 20100517
  6. CYLOCIDE [Suspect]
     Indication: NEOPLASM MALIGNANT
     Route: 042
     Dates: start: 20100623, end: 20100625
  7. VEPESID [Suspect]
     Indication: NEOPLASM MALIGNANT
     Route: 042
     Dates: start: 20100515, end: 20100519
  8. VEPESID [Suspect]
     Indication: NEOPLASM MALIGNANT
     Route: 042
     Dates: start: 20100623, end: 20100627
  9. IDAMYCIN [Suspect]
     Indication: NEOPLASM MALIGNANT
     Route: 042
     Dates: start: 20100515, end: 20100515
  10. IDAMYCIN [Suspect]
     Indication: NEOPLASM MALIGNANT
     Route: 042
     Dates: start: 20100623, end: 20100623
  11. ZYLORIC [Concomitant]
     Indication: PROPHYLAXIS
     Route: 048
     Dates: start: 20100421, end: 20100502
  12. LOXOPROFEN [Concomitant]
     Indication: PROPHYLAXIS
     Route: 048
     Dates: start: 20100422, end: 20100430
  13. LOXOPROFEN [Concomitant]
     Indication: PROPHYLAXIS
     Route: 048
     Dates: start: 20100510, end: 20100519
  14. MYCOSYST [Concomitant]
     Indication: INFECTION PROPHYLAXIS
     Route: 048
     Dates: start: 20100511, end: 20100611
  15. MYCOSYST [Concomitant]
     Indication: INFECTION PROPHYLAXIS
     Route: 048
     Dates: start: 20100702, end: 20100712
  16. ADSORBIN [Concomitant]
     Route: 048
     Dates: start: 20100522, end: 20100808
  17. KLARICID [Concomitant]
     Indication: SINUSITIS
     Route: 048
     Dates: start: 20100714, end: 20100804
  18. MUCODYNE [Concomitant]
     Indication: SINUSITIS
     Route: 048
     Dates: start: 20100714, end: 20100731
  19. SOLDEM 3A [Concomitant]
     Indication: FLUID REPLACEMENT
     Route: 042
     Dates: start: 20100421, end: 20100527
  20. SOLDEM 3A [Concomitant]
     Indication: FLUID REPLACEMENT
     Route: 042
     Dates: start: 20100613, end: 20100707
  21. SOLDEM 3A [Concomitant]
     Indication: FLUID REPLACEMENT
     Route: 042
     Dates: start: 20100722, end: 20100802
  22. PHYSIO 35 [Concomitant]
     Indication: NUTRITIONAL SUPPLEMENTATION
     Route: 042
     Dates: start: 20100528, end: 20100531
  23. PHYSIO 35 [Concomitant]
     Indication: NUTRITIONAL SUPPLEMENTATION
     Route: 042
     Dates: start: 20100707, end: 20100715
  24. FULCALIQ [Concomitant]
     Indication: NUTRITIONAL SUPPLEMENTATION
     Route: 042
     Dates: start: 20100611, end: 20100611
  25. VOLVIX [Concomitant]
     Indication: NUTRITIONAL SUPPLEMENTATION
     Route: 042
     Dates: start: 20100601, end: 20100611
  26. NEO-MINOPHAGEN-C [Concomitant]
     Route: 042
     Dates: start: 20100421, end: 20100503
  27. KYTRIL [Concomitant]
     Indication: PROPHYLAXIS OF NAUSEA AND VOMITING
     Route: 042
     Dates: start: 20100421, end: 20100427
  28. KYTRIL [Concomitant]
     Indication: PROPHYLAXIS OF NAUSEA AND VOMITING
     Route: 042
     Dates: start: 20100510, end: 20100519
  29. KYTRIL [Concomitant]
     Indication: PROPHYLAXIS OF NAUSEA AND VOMITING
     Route: 042
     Dates: start: 20100618, end: 20100622
  30. KYTRIL [Concomitant]
     Indication: PROPHYLAXIS OF NAUSEA AND VOMITING
     Route: 042
     Dates: start: 20100626, end: 20100627
  31. ALOXI [Concomitant]
     Indication: PROPHYLAXIS OF NAUSEA AND VOMITING
     Route: 042
     Dates: start: 20100623, end: 20100623
  32. SOL-MELCORT [Concomitant]
     Indication: ALLERGY PROPHYLAXIS
     Route: 042
     Dates: start: 20100515, end: 20100517
  33. FLUMARIN [Concomitant]
     Indication: INFECTION PROPHYLAXIS
     Route: 042
     Dates: start: 20100428, end: 20100527
  34. FLUMARIN [Concomitant]
     Indication: INFECTION PROPHYLAXIS
     Route: 042
     Dates: start: 20100701, end: 20100702
  35. CEFTAZIDIME [Concomitant]
     Indication: INFECTION PROPHYLAXIS
     Route: 042
     Dates: start: 20100527, end: 20100602
  36. NEUTROGIN [Concomitant]
     Dates: start: 20100526, end: 20100613
  37. NEUTROGIN [Concomitant]
     Dates: start: 20100702, end: 20100715
  38. VITAMEDIN [Concomitant]
     Indication: NUTRITIONAL SUPPLEMENTATION
     Route: 042
     Dates: start: 20100514, end: 20100531
  39. VITAMEDIN [Concomitant]
     Indication: NUTRITIONAL SUPPLEMENTATION
     Route: 042
     Dates: start: 20100707, end: 20100715

REACTIONS (22)
  - Neuropathy peripheral [Recovered/Resolved]
  - Gait disturbance [Recovered/Resolved]
  - Neutrophil count decreased [Recovered/Resolved]
  - Neutrophil count decreased [Recovered/Resolved]
  - Neutrophil count decreased [Recovered/Resolved]
  - Platelet count decreased [Recovered/Resolved]
  - Platelet count decreased [Recovered/Resolved]
  - Pyrexia [Recovering/Resolving]
  - Pyrexia [Recovering/Resolving]
  - White blood cell count decreased [Recovered/Resolved]
  - White blood cell count decreased [Recovered/Resolved]
  - White blood cell count decreased [Recovered/Resolved]
  - Headache [Recovering/Resolving]
  - Headache [Recovering/Resolving]
  - Headache [Recovering/Resolving]
  - Headache [Recovering/Resolving]
  - Haemoglobin decreased [Recovered/Resolved]
  - Aspartate aminotransferase increased [Recovered/Resolved]
  - Aspartate aminotransferase increased [Recovered/Resolved]
  - Aspartate aminotransferase increased [Recovered/Resolved]
  - Alanine aminotransferase increased [Recovered/Resolved]
  - Hyperbilirubinaemia [Recovered/Resolved]
